FAERS Safety Report 7517197-7 (Version None)
Quarter: 2011Q2

REPORT INFORMATION
  Report Type: 
  Country: None (occurrence: None)
  Receive Date: 20110601
  Receipt Date: 20110520
  Transmission Date: 20111010
  Serious: Yes (Death, Other)
  Sender: FDA-Public Use
  Company Number: US-PFIZER INC-2011109740

PATIENT
  Age: 55 Year
  Sex: Female

DRUGS (2)
  1. PRISTIQ [Suspect]
     Indication: DEPRESSION
     Dosage: 50 MG, 1X/DAY
     Route: 048
     Dates: start: 20100101
  2. PRISTIQ [Suspect]
     Dosage: 150 MG, 1X/DAY
     Route: 048

REACTIONS (2)
  - COMPLETED SUICIDE [None]
  - DRUG INEFFECTIVE [None]
